FAERS Safety Report 7200325-0 (Version None)
Quarter: 2010Q4

REPORT INFORMATION
  Report Type: 
  Country: None (occurrence: None)
  Receive Date: 20101228
  Receipt Date: 20101215
  Transmission Date: 20110411
  Serious: Yes (Death)
  Sender: FDA-Public Use
  Company Number: B0690912A

PATIENT
  Age: 71 Year
  Sex: Male

DRUGS (1)
  1. CEFTAZIDIME [Suspect]
     Indication: SURGERY
     Route: 042
     Dates: start: 20081201, end: 20081201

REACTIONS (1)
  - ANAPHYLACTIC SHOCK [None]
